FAERS Safety Report 20944937 (Version 2)
Quarter: 2022Q2

REPORT INFORMATION
  Report Type: Report from Study
  Country: BR (occurrence: BR)
  Receive Date: 20220610
  Receipt Date: 20220620
  Transmission Date: 20220721
  Serious: Yes (Other)
  Sender: FDA-Public Use
  Company Number: BR-NOVARTISPH-NVSC2022BR133423

PATIENT
  Age: 28 Year
  Sex: Male
  Weight: 67 kg

DRUGS (7)
  1. TEGRETOL XR [Suspect]
     Active Substance: CARBAMAZEPINE
     Indication: Epilepsy
     Dosage: 400 MG
     Route: 065
  2. TEGRETOL XR [Suspect]
     Active Substance: CARBAMAZEPINE
     Dosage: 1 DOSAGE FORM, TID (ABOUT 10 YEARS AGO)
     Route: 048
  3. CARBAMAZEPINE [Suspect]
     Active Substance: CARBAMAZEPINE
     Indication: Epilepsy
     Dosage: 1 DOSAGE FORM, TID (ABOUT 5 OR 6 YEARS AGO)
     Route: 048
  4. PERICIAZINE [Concomitant]
     Active Substance: PERICIAZINE
     Indication: Sleep disorder
     Dosage: 20 DRP, QD (ABOUT 10 YEARS AGO)
     Route: 048
  5. DEPAKENE [Concomitant]
     Active Substance: VALPROIC ACID
     Indication: Cerebral disorder
     Dosage: 1 DOSAGE FORM, TID (ABOUT 10 YEARS AGO)
     Route: 065
  6. PROPRANOLOL [Concomitant]
     Active Substance: PROPRANOLOL HYDROCHLORIDE
     Indication: Product used for unknown indication
     Dosage: 1 DOSAGE FORM, BID
     Route: 048
  7. CLONAZEPAM [Concomitant]
     Active Substance: CLONAZEPAM
     Indication: Product used for unknown indication
     Dosage: 1 DOSAGE FORM, BID (ABOUT 10 YEARS AGO)
     Route: 065

REACTIONS (2)
  - Drug dependence [Unknown]
  - Seizure [Recovered/Resolved]
